FAERS Safety Report 8321941-9 (Version None)
Quarter: 2012Q2

REPORT INFORMATION
  Report Type: 
  Country: None (occurrence: None)
  Receive Date: 20120430
  Receipt Date: 20120423
  Transmission Date: 20120825
  Serious: Yes (Hospitalization)
  Sender: FDA-Public Use
  Company Number: FR-ASTRAZENECA-2012SE26954

PATIENT
  Age: 38 Year
  Sex: Female

DRUGS (13)
  1. CALCIPARINE [Suspect]
     Route: 065
     Dates: start: 20120301
  2. FLUCONAZOLE [Suspect]
     Route: 065
  3. MOTILIUM [Concomitant]
     Dates: end: 20120301
  4. ATOVAQUONE [Suspect]
     Route: 065
     Dates: start: 20120315
  5. TRANDOLAPRIL [Suspect]
     Route: 065
     Dates: start: 20120301
  6. CALCIPARINE [Suspect]
     Indication: THROMBOSIS
     Route: 065
     Dates: start: 20120101, end: 20120301
  7. POTASSIUM CHLORIDE [Concomitant]
  8. CRESTOR [Suspect]
     Route: 048
     Dates: start: 20120301
  9. ATOVAQUONE [Suspect]
     Indication: CEREBRAL TOXOPLASMOSIS
     Route: 065
     Dates: start: 20120115, end: 20120314
  10. MOTILIUM [Concomitant]
     Dates: start: 20120301
  11. TRANDOLAPRIL [Suspect]
     Indication: RENAL FAILURE
     Route: 065
     Dates: start: 20120208, end: 20120301
  12. FUNGIZONE [Suspect]
     Route: 065
  13. NEXIUM [Suspect]
     Route: 048
     Dates: start: 20120125, end: 20120301

REACTIONS (2)
  - NEUTROPENIA [None]
  - RENAL FAILURE ACUTE [None]
